FAERS Safety Report 13560656 (Version 1)
Quarter: 2017Q2

REPORT INFORMATION
  Report Type: Spontaneous
  Country: US (occurrence: US)
  Receive Date: 20170518
  Receipt Date: 20170518
  Transmission Date: 20170830
  Serious: No
  Sender: FDA-Public Use
  Company Number: US-ROCHE-766740

PATIENT
  Age: 62 Year
  Sex: Male
  Weight: 95.2 kg

DRUGS (8)
  1. ALEVE [Suspect]
     Active Substance: NAPROXEN SODIUM
     Dosage: FORM: FILM COATED TABLET, OTHER INDICATION: ARTHRITIS PAIN IN FEET
     Route: 065
     Dates: start: 20110204, end: 20110204
  2. FISH OIL [Concomitant]
     Active Substance: FISH OIL
     Route: 065
  3. BAYER ASPIRIN [Concomitant]
     Active Substance: ASPIRIN
     Dosage: DRUG: BAYER ASPIRIN REGIMEN ADULT LOW STRENGTH
     Route: 065
  4. METOPROLOL. [Concomitant]
     Active Substance: METOPROLOL
     Route: 065
  5. ALEVE [Suspect]
     Active Substance: NAPROXEN SODIUM
     Indication: TOOTHACHE
     Dosage: NAME: ALEVE GELCAP, START DATE: FEB 2011, BOTTLE COUNT: 40
     Route: 065
  6. PREVACID [Concomitant]
     Active Substance: LANSOPRAZOLE
     Route: 065
  7. SIMVASTATIN. [Concomitant]
     Active Substance: SIMVASTATIN
     Route: 065
  8. ENALAPRIL [Concomitant]
     Active Substance: ENALAPRIL
     Route: 065

REACTIONS (2)
  - Arthralgia [Unknown]
  - Toothache [Unknown]

NARRATIVE: CASE EVENT DATE: 20110204
